FAERS Safety Report 9173182 (Version 1)
Quarter: 2013Q1

REPORT INFORMATION
  Report Type: Spontaneous
  Country: IT (occurrence: None)
  Receive Date: 20130314
  Receipt Date: 20130314
  Transmission Date: 20140127
  Serious: Yes (Hospitalization)
  Sender: FDA-Public Use
  Company Number: AUR-APL-2013-02011

PATIENT
  Age: 78 Year
  Sex: Male

DRUGS (3)
  1. LEVOFLOXACIN (LEVOFLOXACIN) [Suspect]
     Indication: OROPHARYNGEAL PAIN
     Route: 048
     Dates: start: 20130129, end: 20130202
  2. CARDURA (DOXAZOSIN MESILATE) [Concomitant]
  3. TAREG (VALSARTAN) [Concomitant]

REACTIONS (4)
  - Leukopenia [None]
  - Neutropenia [None]
  - Infectious mononucleosis [None]
  - Blast cells present [None]
